FAERS Safety Report 24382031 (Version 1)
Quarter: 2024Q4

REPORT INFORMATION
  Report Type: Spontaneous
  Country: US (occurrence: US)
  Receive Date: 20241001
  Receipt Date: 20241001
  Transmission Date: 20250115
  Serious: Yes (Other)
  Sender: JOHNSON AND JOHNSON
  Company Number: US-JNJFOC-20240956602

PATIENT
  Age: 65 Year

DRUGS (1)
  1. TALVEY [Suspect]
     Active Substance: TALQUETAMAB-TGVS
     Indication: Product used for unknown indication
     Route: 065
     Dates: start: 20231116

REACTIONS (5)
  - Clostridium difficile colitis [Unknown]
  - Taste disorder [Recovered/Resolved]
  - COVID-19 [Unknown]
  - Influenza [Unknown]
  - Onychomadesis [Unknown]
